FAERS Safety Report 9275808 (Version 1)
Quarter: 2013Q2

REPORT INFORMATION
  Report Type: Spontaneous
  Country: US (occurrence: US)
  Receive Date: 20130507
  Receipt Date: 20130507
  Transmission Date: 20140414
  Serious: Yes (Death, Hospitalization)
  Sender: FDA-Public Use
  Company Number: US-JNJFOC-20130414453

PATIENT
  Age: 78 Year
  Sex: Male

DRUGS (6)
  1. LEVOFLOXACIN [Suspect]
     Indication: INFECTION
     Route: 065
  2. CLINDAMYCIN [Suspect]
     Indication: INFECTION
     Route: 065
  3. ALBUTEROL/IPRATROPIUM [Suspect]
     Indication: INFECTION
     Route: 065
  4. VANCOMYCIN [Suspect]
     Indication: INFECTION
     Route: 065
  5. PIPERACILLIN/TAZOBACTAM [Suspect]
     Indication: INFECTION
     Route: 065
  6. AZITHROMYCIN [Suspect]
     Indication: INFECTION
     Route: 065

REACTIONS (6)
  - Septic shock [Fatal]
  - Respiratory distress [Fatal]
  - Pleural effusion [Fatal]
  - No therapeutic response [None]
  - Condition aggravated [None]
  - Disease progression [None]
